FAERS Safety Report 19678772 (Version 2)
Quarter: 2021Q3

REPORT INFORMATION
  Report Type: Spontaneous
  Country: US (occurrence: US)
  Receive Date: 20210810
  Receipt Date: 20210917
  Transmission Date: 20211014
  Serious: Yes (Other)
  Sender: FDA-Public Use
  Company Number: US-AMGEN-USASP2021121725

PATIENT
  Age: 57 Year
  Sex: Female
  Weight: 104.31 kg

DRUGS (12)
  1. SULFASALAZINE. [Concomitant]
     Active Substance: SULFASALAZINE
     Indication: RHEUMATOID ARTHRITIS
     Route: 065
  2. FOLIC ACID. [Concomitant]
     Active Substance: FOLIC ACID
     Indication: PRODUCT USED FOR UNKNOWN INDICATION
     Route: 065
  3. MODERNA COVID?19 VACCINE [Concomitant]
     Active Substance: CX-024414
     Indication: COVID-19 IMMUNISATION
     Dosage: 1 IN ONCE
     Route: 030
     Dates: start: 202104, end: 202104
  4. SUPER B [AMINO ACIDS NOS;MINERALS NOS;VITAMINS NOS] [Concomitant]
  5. HUMIRA [Suspect]
     Active Substance: ADALIMUMAB
     Indication: RHEUMATOID ARTHRITIS
     Dosage: 40 MILLIGRAM, Q2WK
     Route: 058
     Dates: start: 20210618
  6. DICLOFENAC [Concomitant]
     Active Substance: DICLOFENAC
     Indication: BACK PAIN
     Route: 065
  7. ENBREL [Suspect]
     Active Substance: ETANERCEPT
     Indication: RHEUMATOID ARTHRITIS
     Dosage: UNK
     Route: 065
     Dates: start: 2019, end: 202106
  8. MELOXICAM. [Concomitant]
     Active Substance: MELOXICAM
     Indication: OSTEOARTHRITIS
     Route: 065
  9. GABAPENTIN. [Concomitant]
     Active Substance: GABAPENTIN
     Indication: NEURALGIA
     Route: 065
  10. LISINOPRIL. [Concomitant]
     Active Substance: LISINOPRIL
     Indication: BLOOD PRESSURE ABNORMAL
     Route: 065
  11. CALCIUM [Concomitant]
     Active Substance: CALCIUM
     Indication: SUPPLEMENTATION THERAPY
     Route: 065
  12. MODERNA COVID?19 VACCINE [Concomitant]
     Active Substance: CX-024414
     Dosage: 1 IN ONCE
     Route: 030
     Dates: start: 202105, end: 202105

REACTIONS (10)
  - Rheumatoid arthritis [Recovered/Resolved]
  - Cholelithiasis [Recovered/Resolved]
  - Post procedural complication [Recovering/Resolving]
  - Back pain [Unknown]
  - Infusion [Unknown]
  - Dehydration [Recovered/Resolved]
  - Drug ineffective [Recovered/Resolved]
  - Chromaturia [Recovered/Resolved]
  - Arthropathy [Unknown]
  - Urine abnormality [Recovered/Resolved]

NARRATIVE: CASE EVENT DATE: 2019
